FAERS Safety Report 5283359-5 (Version None)
Quarter: 2007Q1

REPORT INFORMATION
  Report Type: 
  Country: None (occurrence: None)
  Receive Date: 20070328
  Receipt Date: 20070328
  Transmission Date: 20070707
  Serious: Yes (Hospitalization)
  Sender: FDA-Public Use
  Company Number: None

PATIENT
  Age: 39 Year
  Sex: Female
  Weight: 58.514 kg

DRUGS (8)
  1. RAD001(EVENOLIMUS) 10 MG [Suspect]
     Indication: NEOPLASM MALIGNANT
     Dosage: 10 MG PO QD
     Route: 048
     Dates: start: 20061204
  2. RAD001(EVENOLIMUS) 10 MG [Suspect]
     Indication: NEOPLASM MALIGNANT
     Dosage: 10 MG PO QD
     Route: 048
     Dates: start: 20070115
  3. DILAUDID PER EPIDURAL CATHETER [Concomitant]
  4. FENTANYL TRANSDERMAL SYSTEM [Concomitant]
  5. KYTRIL [Concomitant]
  6. NEXIUM [Concomitant]
  7. COMPAZINE [Concomitant]
  8. ATIVAN [Concomitant]

REACTIONS (6)
  - ANAEMIA [None]
  - ASCITES [None]
  - DISEASE PROGRESSION [None]
  - DRUG TOXICITY [None]
  - PNEUMONIA [None]
  - THROMBOCYTOPENIA [None]
